FAERS Safety Report 9188584 (Version 1)
Quarter: 2013Q1

REPORT INFORMATION
  Report Type: Spontaneous
  Country: GR (occurrence: GR)
  Receive Date: 20130325
  Receipt Date: 20130325
  Transmission Date: 20140127
  Serious: Yes (Other)
  Sender: FDA-Public Use
  Company Number: GR-ELI_LILLY_AND_COMPANY-GR201303005776

PATIENT
  Age: 60 Year
  Sex: Female

DRUGS (2)
  1. LADOSE [Suspect]
     Indication: DEPRESSION
     Dosage: 20 MG, QD
     Dates: start: 201109
  2. DIOVAN [Concomitant]
     Indication: HYPERTENSION
     Dosage: 1 DF, UNKNOWN

REACTIONS (2)
  - Hypertension [Unknown]
  - Irritability [Unknown]
